FAERS Safety Report 7516960-6 (Version None)
Quarter: 2011Q2

REPORT INFORMATION
  Report Type: 
  Country: None (occurrence: None)
  Receive Date: 20110502
  Receipt Date: 20110204
  Transmission Date: 20111010
  Serious: Yes (Other)
  Sender: FDA-Public Use
  Company Number: AMAG201100022

PATIENT
  Age: 22 Year
  Sex: Female
  Weight: 55.8 kg

DRUGS (2)
  1. FERAHEME [Suspect]
     Indication: NEPHROGENIC ANAEMIA
     Dosage: 510 MG, SINGLE, INTRAVENOUS
     Route: 042
     Dates: start: 20110204, end: 20110204
  2. FERAHEME [Suspect]
     Indication: IRON DEFICIENCY ANAEMIA
     Dosage: 510 MG, SINGLE, INTRAVENOUS
     Route: 042
     Dates: start: 20110204, end: 20110204

REACTIONS (4)
  - SYNCOPE [None]
  - NAUSEA [None]
  - DIZZINESS [None]
  - POSTURING [None]
